FAERS Safety Report 8002715-5 (Version None)
Quarter: 2011Q4

REPORT INFORMATION
  Report Type: 
  Country: None (occurrence: None)
  Receive Date: 20111220
  Receipt Date: 20111205
  Transmission Date: 20120403
  Serious: Yes (Hospitalization)
  Sender: FDA-Public Use
  Company Number: FK201102895

PATIENT
  Age: 64 Year
  Sex: Female

DRUGS (3)
  1. LEVOTHYROXINE SODIUM [Concomitant]
  2. OMEPRAZOLE [Concomitant]
  3. PAMIDRONATE DISODIUM [Suspect]
     Indication: BONE DISORDER
     Dosage: 58 TOTAL DOSES FOR 103 MONTHS, INTRAVENOUS
     Route: 042

REACTIONS (2)
  - PAIN IN EXTREMITY [None]
  - FEMUR FRACTURE [None]
